FAERS Safety Report 23689709 (Version 1)
Quarter: 2024Q1

REPORT INFORMATION
  Report Type: Spontaneous
  Country: US (occurrence: US)
  Receive Date: 20240331
  Receipt Date: 20240331
  Transmission Date: 20240409
  Serious: No
  Sender: FDA-Public Use
  Company Number: US-009507513-2403USA007093

PATIENT
  Sex: Female

DRUGS (2)
  1. EMEND [Suspect]
     Active Substance: APREPITANT
     Indication: Procedural nausea
     Route: 048
     Dates: start: 20240314
  2. EMEND [Suspect]
     Active Substance: APREPITANT
     Indication: Procedural vomiting

REACTIONS (4)
  - Intermenstrual bleeding [Unknown]
  - Affect lability [Unknown]
  - Crying [Unknown]
  - Myalgia [Unknown]

NARRATIVE: CASE EVENT DATE: 20240320
